FAERS Safety Report 6995869-0 (Version None)
Quarter: 2010Q3

REPORT INFORMATION
  Report Type: 
  Country: None (occurrence: None)
  Receive Date: 20100918
  Receipt Date: 20081203
  Transmission Date: 20110219
  Serious: No
  Sender: FDA-Public Use
  Company Number: US-WYE-H06912508

PATIENT
  Sex: Female

DRUGS (5)
  1. EFFEXOR XR [Suspect]
     Route: 048
     Dates: start: 20000901
  2. EFFEXOR XR [Suspect]
     Dosage: CUTTING THE DOSAGE IN ORDER TO EXTEND THE PILLS
     Route: 048
     Dates: start: 20080101
  3. EFFEXOR XR [Suspect]
     Route: 048
  4. EFFEXOR XR [Suspect]
     Route: 048
  5. TOPAMAX [Concomitant]

REACTIONS (6)
  - BLOOD PRESSURE ABNORMAL [None]
  - DEPRESSION [None]
  - DRUG WITHDRAWAL SYNDROME [None]
  - MOOD SWINGS [None]
  - PARAESTHESIA [None]
  - PHOTOPHOBIA [None]
